FAERS Safety Report 25780080 (Version 1)
Quarter: 2025Q3

REPORT INFORMATION
  Report Type: Spontaneous
  Country: US (occurrence: None)
  Receive Date: 20250909
  Receipt Date: 20250909
  Transmission Date: 20251021
  Serious: No
  Sender: FDA-CTU
  Company Number: None

PATIENT
  Age: 36 Year
  Sex: Female
  Weight: 75.8 kg

DRUGS (11)
  1. XELJANZ XR [Suspect]
     Active Substance: TOFACITINIB CITRATE
     Indication: Rheumatoid arthritis
     Dosage: 11 MG DAILY ORAL
     Route: 048
     Dates: start: 20250616
  2. Daily Immune: Pure Encapsulations [Concomitant]
  3. VTAMA [Concomitant]
     Active Substance: TAPINAROF
  4. Serious Delicious High Potency Citrus Sorbet [Concomitant]
  5. O.N.E. Multivitamin [Concomitant]
  6. Mirena 52mcg IUD [Concomitant]
  7. Magnesium glycinate 120mg [Concomitant]
  8. Liquid vit D3/k2 [Concomitant]
  9. Glutagenics powder: metagenics [Concomitant]
  10. DGL Chewable [Concomitant]
  11. Clindamycin lotion 1% [Concomitant]

REACTIONS (2)
  - Acne [None]
  - Seborrhoea [None]

NARRATIVE: CASE EVENT DATE: 20250815
